FAERS Safety Report 23428149 (Version 1)
Quarter: 2024Q1

REPORT INFORMATION
  Report Type: Spontaneous
  Country: CN (occurrence: CN)
  Receive Date: 20240122
  Receipt Date: 20240122
  Transmission Date: 20240410
  Serious: Yes (Other)
  Sender: FDA-Public Use
  Company Number: CN-PFIZER INC-202400016657

PATIENT
  Age: 26 Year
  Sex: Female

DRUGS (3)
  1. PACLITAXEL [Suspect]
     Active Substance: PACLITAXEL
  2. CARBOPLATIN [Suspect]
     Active Substance: CARBOPLATIN
  3. PEMBROLIZUMAB [Suspect]
     Active Substance: PEMBROLIZUMAB

REACTIONS (3)
  - Myocarditis [Recovering/Resolving]
  - Myocardial injury [Recovering/Resolving]
  - Sinus tachycardia [Recovering/Resolving]
